FAERS Safety Report 19924896 (Version 1)
Quarter: 2021Q4

REPORT INFORMATION
  Report Type: Report from Study
  Country: PK (occurrence: PK)
  Receive Date: 20211006
  Receipt Date: 20211006
  Transmission Date: 20220304
  Serious: Yes (Death)
  Sender: FDA-Public Use
  Company Number: PK-NOVARTISPH-NVSC2021PK228740

PATIENT
  Age: 32 Year
  Sex: Female

DRUGS (1)
  1. KISQALI [Suspect]
     Active Substance: RIBOCICLIB
     Indication: Breast cancer metastatic
     Dosage: 200 MG, TID (3X OD)
     Route: 048
     Dates: start: 20210226, end: 20210720

REACTIONS (1)
  - Death [Fatal]

NARRATIVE: CASE EVENT DATE: 20210803
